FAERS Safety Report 5206749-5 (Version None)
Quarter: 2007Q1

REPORT INFORMATION
  Report Type: 
  Country: None (occurrence: None)
  Receive Date: 20070108
  Receipt Date: 20061227
  Transmission Date: 20070707
  Serious: Yes (Hospitalization, Other)
  Sender: FDA-Public Use
  Company Number: DEWYE958327DEC06

PATIENT
  Age: 24 Year
  Sex: Female

DRUGS (9)
  1. VENLAFAXINE HCL [Suspect]
     Dosage: 150 MG PER DAY ORAL
     Route: 048
     Dates: start: 20030109
  2. IMPROMEN (BROMPERIDOL, , 0) [Suspect]
     Dosage: 5 MG PER DAY ORAL
     Route: 048
     Dates: start: 20030110
  3. RISPERDAL [Suspect]
     Dosage: 4 MG PER DAY ORAL
     Route: 048
     Dates: start: 20030205, end: 20030225
  4. RISPERDAL [Suspect]
     Dosage: ORAL
     Route: 048
     Dates: start: 20030202, end: 20030203
  5. RISPERDAL [Suspect]
     Dosage: 3 MG PER DAY ORAL
     Route: 048
     Dates: start: 20030204, end: 20030204
  6. GASTROZEPIN [Concomitant]
  7. VITAMIN E [Concomitant]
  8. AKINETON [Concomitant]
  9. TRIHEXYPHENIDYL HCL [Concomitant]

REACTIONS (3)
  - BREAST SWELLING [None]
  - DRUG INTERACTION POTENTIATION [None]
  - GALACTORRHOEA [None]
